FAERS Safety Report 9055799 (Version 1)
Quarter: 2013Q1

REPORT INFORMATION
  Report Type: Spontaneous
  Country: US (occurrence: US)
  Receive Date: 20130206
  Receipt Date: 20130206
  Transmission Date: 20140127
  Serious: Yes (Other)
  Sender: FDA-Public Use
  Company Number: US-PFIZER INC-2013034585

PATIENT
  Age: 61 Year
  Sex: Female
  Weight: 57.14 kg

DRUGS (1)
  1. RAPAMUNE [Suspect]
     Dosage: 3 MG, UNK
     Route: 048

REACTIONS (2)
  - Dysphagia [Unknown]
  - Dyspnoea [Unknown]
